FAERS Safety Report 6206535-3 (Version None)
Quarter: 2009Q2

REPORT INFORMATION
  Report Type: 
  Country: None (occurrence: None)
  Receive Date: 20090528
  Receipt Date: 20090519
  Transmission Date: 20091009
  Serious: Yes (Hospitalization, Other)
  Sender: FDA-Public Use
  Company Number: US-ELI_LILLY_AND_COMPANY-US200812002132

PATIENT
  Sex: Female
  Weight: 63.492 kg

DRUGS (12)
  1. FORTEO [Suspect]
     Indication: HYPOPARATHYROIDISM
     Dosage: 20 UG, UNK
     Dates: start: 20080701, end: 20081010
  2. KEPPRA [Concomitant]
  3. SYNTHROID [Concomitant]
  4. MORPHINE SULFATE [Concomitant]
  5. ONDANSETRON [Concomitant]
  6. PREDNISONE [Concomitant]
     Dosage: 4 MG, UNK
  7. MAGNESIUM SULFATE [Concomitant]
  8. LORAZEPAM [Concomitant]
  9. OXYCODONE [Concomitant]
  10. FAMOTIDINE [Concomitant]
  11. PROMETHAZINE [Concomitant]
  12. ERGOCALCIFEROL (VITAMIN D) [Concomitant]
     Dosage: 50000 U, DAILY (1/D)

REACTIONS (4)
  - HYPERCALCAEMIA [None]
  - HYPERMAGNESAEMIA [None]
  - HYPOMAGNESAEMIA [None]
  - RENAL FAILURE ACUTE [None]
